FAERS Safety Report 19812907 (Version 3)
Quarter: 2021Q3

REPORT INFORMATION
  Report Type: Report from Study
  Country: CA (occurrence: CA)
  Receive Date: 20210910
  Receipt Date: 20210924
  Transmission Date: 20211014
  Serious: Yes (Other)
  Sender: FDA-Public Use
  Company Number: CA-ASTRAZENECA-2020SF20846

PATIENT
  Age: 55 Year
  Sex: Female

DRUGS (7)
  1. TUDORZA GENUAIR [Suspect]
     Active Substance: ACLIDINIUM BROMIDE
     Indication: PRODUCT USED FOR UNKNOWN INDICATION
     Dosage: 1 INHALER WITH 30 ACTUATIONS + 1 INHALER WITH 60 ACTUATIONS
     Route: 055
  2. NUCALA [Suspect]
     Active Substance: MEPOLIZUMAB
     Indication: ASTHMA
     Dosage: 100 MG, Z (MONTHLY)100.0MG UNKNOWN
     Route: 042
     Dates: start: 20171221
  3. TUDORZA GENUAIR [Suspect]
     Active Substance: ACLIDINIUM BROMIDE
     Indication: PRODUCT USED FOR UNKNOWN INDICATION
     Dosage: 1DF ,BID
     Route: 055
  4. ADVAIR HFA [Suspect]
     Active Substance: FLUTICASONE PROPIONATE\SALMETEROL XINAFOATE
     Indication: PRODUCT USED FOR UNKNOWN INDICATION
     Dosage: 2 PUFF(S), BID, 500 MCG
     Route: 065
     Dates: start: 2007
  5. VENTOLIN [Suspect]
     Active Substance: ALBUTEROL SULFATE
     Indication: PRODUCT USED FOR UNKNOWN INDICATION
     Dosage: 400 UG, BID
     Route: 065
  6. VILANTEROL TRIFENATATE/FLUTICASONE FUROATE [Suspect]
     Active Substance: FLUTICASONE FUROATE\VILANTEROL TRIFENATATE
     Indication: PRODUCT USED FOR UNKNOWN INDICATION
     Dosage: UNK
     Route: 065
  7. NUCALA [Suspect]
     Active Substance: MEPOLIZUMAB
     Indication: ASTHMA
     Dosage: 100 MG, Z (MONTHLY)100.0MG UNKNOWN
     Route: 042
     Dates: start: 20171221

REACTIONS (7)
  - Blood immunoglobulin E [Unknown]
  - Eosinophil count abnormal [Unknown]
  - Bronchial obstruction [Unknown]
  - Therapeutic product effect incomplete [Recovered/Resolved]
  - Forced expiratory volume abnormal [Recovered/Resolved]
  - Mean platelet volume abnormal [Unknown]
  - Asthma [Recovered/Resolved]
